FAERS Safety Report 21937620 (Version 2)
Quarter: 2023Q1

REPORT INFORMATION
  Report Type: Spontaneous
  Country: JP (occurrence: JP)
  Receive Date: 20230201
  Receipt Date: 20230208
  Transmission Date: 20230417
  Serious: Yes (Other)
  Sender: FDA-Public Use
  Company Number: JP-MALLINCKRODT-T202300729

PATIENT
  Age: 58 Week
  Sex: Male
  Weight: 3 kg

DRUGS (1)
  1. OFIRMEV [Suspect]
     Active Substance: ACETAMINOPHEN
     Indication: Pyrexia
     Dosage: 340 MILLIGRAM/34ML
     Route: 042

REACTIONS (2)
  - Hypoxic-ischaemic encephalopathy [Unknown]
  - Accidental overdose [Unknown]
